FAERS Safety Report 9275486 (Version 1)
Quarter: 2013Q2

REPORT INFORMATION
  Report Type: Spontaneous
  Country: US (occurrence: US)
  Receive Date: 20130507
  Receipt Date: 20130507
  Transmission Date: 20140414
  Serious: No
  Sender: FDA-Public Use
  Company Number: US-PFIZER INC-2013140298

PATIENT
  Age: 38 Year
  Sex: Male
  Weight: 88.89 kg

DRUGS (4)
  1. NEURONTIN [Suspect]
     Indication: RESTLESS LEGS SYNDROME
     Dosage: 300 MG, 4X/DAY
     Route: 048
     Dates: start: 2013, end: 201303
  2. NEURONTIN [Suspect]
     Indication: ARTHRALGIA
  3. HYDROCODONE [Concomitant]
     Dosage: 10 MG, UNK
  4. KLONOPIN [Concomitant]
     Indication: ANXIETY
     Dosage: 1 MG, 3X/DAY

REACTIONS (3)
  - Off label use [Unknown]
  - Blood test abnormal [Unknown]
  - Dizziness [Recovered/Resolved]
